FAERS Safety Report 9584624 (Version 1)
Quarter: 2013Q4

REPORT INFORMATION
  Report Type: Spontaneous
  Country: US (occurrence: US)
  Receive Date: 20131002
  Receipt Date: 20131002
  Transmission Date: 20140711
  Serious: No
  Sender: FDA-Public Use
  Company Number: US-AMGEN-USASP2013054460

PATIENT
  Age: 40 Year
  Sex: Female

DRUGS (1)
  1. ENBREL [Suspect]
     Indication: PSORIASIS
     Dosage: 25 MG, EVERY 7 TO 10 WEEKS.
     Route: 065
     Dates: start: 200802, end: 2012

REACTIONS (2)
  - Skin plaque [Not Recovered/Not Resolved]
  - Psoriasis [Not Recovered/Not Resolved]
